FAERS Safety Report 7024946-3 (Version None)
Quarter: 2010Q4

REPORT INFORMATION
  Report Type: 
  Country: None (occurrence: None)
  Receive Date: 20101001
  Receipt Date: 20100708
  Transmission Date: 20110411
  Serious: No
  Sender: FDA-Public Use
  Company Number: US-NOVEN-10US001346

PATIENT
  Sex: Female

DRUGS (3)
  1. FENTANYL [Suspect]
     Indication: PAIN
     Dosage: 100  UG/HR, Q2 DAYS
     Route: 062
     Dates: start: 20100101
  2. FENTANYL [Suspect]
     Indication: PARAESTHESIA
     Dosage: 100 UG/HR, Q3 DAYS
     Route: 062
     Dates: start: 20100501, end: 20100101
  3. UNKNOWN [Concomitant]

REACTIONS (1)
  - INADEQUATE ANALGESIA [None]
